FAERS Safety Report 7438258-7 (Version None)
Quarter: 2011Q2

REPORT INFORMATION
  Report Type: 
  Country: None (occurrence: None)
  Receive Date: 20110426
  Receipt Date: 20101110
  Transmission Date: 20111010
  Serious: Yes (Hospitalization, Other)
  Sender: FDA-Public Use
  Company Number: US-BAYER-201029491NA

PATIENT
  Age: 18 Year
  Sex: Female
  Weight: 108.84 kg

DRUGS (9)
  1. ZYTEC [Concomitant]
     Dosage: UNK UNK, BID
     Route: 048
  2. HYDROCHLOROTHIAZIDE [Concomitant]
     Dosage: 25 MG, QD
     Route: 048
     Dates: start: 20080320
  3. PHENTERMINE [Concomitant]
     Dosage: 15 MG, QD
     Route: 048
     Dates: start: 20080418
  4. DIAZEPAM [Concomitant]
     Indication: BIPOLAR DISORDER
     Dosage: UNK
     Dates: start: 20080501
  5. YAZ [Suspect]
     Indication: PREMENSTRUAL SYNDROME
     Dosage: UNK
     Dates: start: 20070101, end: 20100101
  6. LISINOPRIL [Concomitant]
     Indication: HYPERTENSION
     Dosage: 1 DF, QD
     Route: 048
  7. YASMIN [Suspect]
     Indication: PREMENSTRUAL SYNDROME
     Dosage: UNK
     Dates: start: 20070101, end: 20100101
  8. PHENTERMINE [Concomitant]
     Dosage: 30 MG, QD
     Route: 048
     Dates: start: 20080320
  9. SINGULAIR [Concomitant]
     Dosage: UNK UNK, QD
     Route: 048

REACTIONS (3)
  - CHOLECYSTITIS CHRONIC [None]
  - INJURY [None]
  - CHOLELITHIASIS [None]
